FAERS Safety Report 5367427-5 (Version None)
Quarter: 2007Q2

REPORT INFORMATION
  Report Type: 
  Country: None (occurrence: None)
  Receive Date: 20070620
  Receipt Date: 20070620
  Transmission Date: 20071010
  Serious: Yes (Life-Threatening, Hospitalization)
  Sender: FDA-Public Use
  Company Number: None

PATIENT
  Age: 43 Year
  Sex: Female
  Weight: 92.0802 kg

DRUGS (2)
  1. COPAXONE [Suspect]
     Indication: MULTIPLE SCLEROSIS
     Dosage: 20 MG SQ DAILY  10MG BID SQ BID
     Route: 058
     Dates: start: 20070401, end: 20070515
  2. COPAXONE [Suspect]
     Indication: MULTIPLE SCLEROSIS
     Dosage: 20 MG SQ DAILY  10MG BID SQ BID
     Route: 058
     Dates: start: 20070605, end: 20070606

REACTIONS (10)
  - APHASIA [None]
  - DRUG HYPERSENSITIVITY [None]
  - DRY THROAT [None]
  - FLUSHING [None]
  - INJECTION SITE ERYTHEMA [None]
  - INJECTION SITE PAIN [None]
  - INJECTION SITE SWELLING [None]
  - INJECTION SITE URTICARIA [None]
  - MUSCLE SPASMS [None]
  - PARAESTHESIA [None]
